FAERS Safety Report 10074350 (Version 1)
Quarter: 2014Q2

REPORT INFORMATION
  Report Type: Spontaneous
  Country: US (occurrence: US)
  Receive Date: 20140412
  Receipt Date: 20140412
  Transmission Date: 20141212
  Serious: No
  Sender: FDA-Public Use
  Company Number: US-009507513-1404USA002201

PATIENT
  Age: 37 Year
  Sex: Female

DRUGS (1)
  1. CLARITIN-D [Suspect]
     Indication: HYPERSENSITIVITY
     Dosage: UNK
     Dates: start: 2000, end: 2010

REACTIONS (1)
  - Therapeutic response decreased [Recovered/Resolved with Sequelae]
